FAERS Safety Report 18548680 (Version 2)
Quarter: 2021Q1

REPORT INFORMATION
  Report Type: Spontaneous
  Country: US (occurrence: US)
  Receive Date: 20201125
  Receipt Date: 20210202
  Transmission Date: 20210419
  Serious: Yes (Death, Life-Threatening)
  Sender: FDA-Public Use
  Company Number: US-LUNDBECK-DKLU3024416

PATIENT
  Age: 68 Year
  Sex: Female

DRUGS (1)
  1. NORTHERA [Suspect]
     Active Substance: DROXIDOPA
     Indication: ORTHOSTATIC HYPOTENSION
     Route: 065
     Dates: start: 20201103

REACTIONS (2)
  - Terminal state [Not Recovered/Not Resolved]
  - Death [Fatal]
